FAERS Safety Report 5895107-6 (Version None)
Quarter: 2008Q3

REPORT INFORMATION
  Report Type: 
  Country: None (occurrence: None)
  Receive Date: 20080924
  Receipt Date: 20080917
  Transmission Date: 20090109
  Serious: Yes (Life-Threatening, Hospitalization)
  Sender: FDA-Public Use
  Company Number: GB-BRISTOL-MYERS SQUIBB COMPANY-14324172

PATIENT
  Age: 67 Year

DRUGS (7)
  1. CETUXIMAB [Suspect]
     Indication: COLON CANCER
     Dosage: START DATE 02-JUN-2008, INTERRUPTED AND RESTARTED ON 18-AUG-2008
     Route: 042
     Dates: start: 20080804, end: 20080804
  2. OXALIPLATIN [Suspect]
     Indication: COLON CANCER
     Dosage: START DATE 02-JUN-2008, INTERRUPTED AND RESTARTED ON 18-AUG-2008
     Route: 042
     Dates: start: 20080728, end: 20080728
  3. FLUOROURACIL [Suspect]
     Indication: COLON CANCER
     Dosage: START DATE 02-JUN-2008, INTERRUPTED AND RESTARTED ON 18-AUG-2008
     Route: 042
     Dates: start: 20080729, end: 20080729
  4. LEUCOVORIN CALCIUM [Suspect]
     Indication: COLON CANCER
     Dosage: START DATE 02-JUN-2008, INTERRUPTED AND RESTARTED ON 18-AUG-2008
     Route: 042
     Dates: start: 20080729, end: 20080729
  5. CHLORHEXIDINE GLUCONATE [Concomitant]
  6. FUSIDATE SODIUM [Concomitant]
  7. OXYTETRACYCLINE [Concomitant]

REACTIONS (5)
  - ATRIAL FIBRILLATION [None]
  - DIARRHOEA [None]
  - NAUSEA [None]
  - SEPSIS [None]
  - VOMITING [None]
